FAERS Safety Report 17218067 (Version 1)
Quarter: 2019Q4

REPORT INFORMATION
  Report Type: Report from Study
  Country: ES (occurrence: ES)
  Receive Date: 20191231
  Receipt Date: 20191231
  Transmission Date: 20200122
  Serious: Yes (Hospitalization)
  Sender: FDA-Public Use
  Company Number: ES-TEVA-2019-ES-1159877

PATIENT
  Age: 37 Year
  Sex: Female

DRUGS (5)
  1. DOXORUBICINA (202A) [Interacting]
     Active Substance: DOXORUBICIN HYDROCHLORIDE
     Indication: ARTHROGRAM ABNORMAL
     Route: 042
     Dates: start: 201512
  2. AROMASIL 25 MG COMPRIMIDOS RECUBIERTOS , 30 COMPRIMIDOS [Concomitant]
     Indication: BREAST NEOPLASM
     Route: 048
     Dates: start: 20160511
  3. DOCETAXEL (7394A) [Suspect]
     Active Substance: DOCETAXEL
     Indication: BREAST NEOPLASM
     Route: 042
     Dates: start: 201512
  4. CICLOFOSFAMIDA (120A) [Interacting]
     Active Substance: CYCLOPHOSPHAMIDE
     Indication: BREAST NEOPLASM
     Route: 042
     Dates: start: 201512
  5. ZOLADEX 3,6 MG IMPLANTE EN JERINGA PRECARGADA , 1 IMPLANTE [Concomitant]
     Indication: BREAST NEOPLASM
     Dosage: 3.6 MG
     Route: 058
     Dates: start: 20160511

REACTIONS (2)
  - Cardiomyopathy acute [Recovering/Resolving]
  - Drug interaction [Unknown]

NARRATIVE: CASE EVENT DATE: 201702
